FAERS Safety Report 6745148-1 (Version None)
Quarter: 2010Q2

REPORT INFORMATION
  Report Type: 
  Country: None (occurrence: None)
  Receive Date: 20100526
  Receipt Date: 20100512
  Transmission Date: 20101027
  Serious: Yes (Disabling)
  Sender: FDA-Public Use
  Company Number: US-1181903

PATIENT
  Sex: Male

DRUGS (1)
  1. CIPRODEX [Suspect]
     Indication: EAR INFECTION
     Dosage: (3 GTT BID AS, FOR 1 WEEK AURICULAR (OTIC))
     Route: 001
     Dates: start: 20100106

REACTIONS (3)
  - DEAFNESS UNILATERAL [None]
  - EAR PAIN [None]
  - HYPOACUSIS [None]
